FAERS Safety Report 9748180 (Version 1)
Quarter: 2013Q4

REPORT INFORMATION
  Report Type: Spontaneous
  Country: US (occurrence: US)
  Receive Date: 20131212
  Receipt Date: 20131212
  Transmission Date: 20140711
  Serious: No
  Sender: FDA-Public Use
  Company Number: US-PFIZER INC-2013353217

PATIENT
  Age: 77 Year
  Sex: Male
  Weight: 97.51 kg

DRUGS (3)
  1. DETROL LA [Suspect]
     Indication: HYPERTONIC BLADDER
     Dosage: 4 MG, 1X/DAY
     Route: 048
     Dates: start: 2013
  2. HYTRIN [Concomitant]
     Indication: PROSTATIC DISORDER
     Dosage: 10 MG, UNK
  3. HYTRIN [Concomitant]
     Indication: BLADDER DISORDER

REACTIONS (2)
  - Drug effect incomplete [Unknown]
  - Prostatic specific antigen increased [Unknown]
